FAERS Safety Report 23341524 (Version 1)
Quarter: 2023Q4

REPORT INFORMATION
  Report Type: Spontaneous
  Country: FR (occurrence: FR)
  Receive Date: 20231227
  Receipt Date: 20231227
  Transmission Date: 20240110
  Serious: Yes (Death, Other)
  Sender: FDA-Public Use
  Company Number: None

PATIENT
  Sex: Female

DRUGS (3)
  1. LOVENOX [Suspect]
     Active Substance: ENOXAPARIN SODIUM
     Indication: Foetal exposure during pregnancy
     Dosage: 100 MG/DAY
     Route: 064
     Dates: start: 20220718, end: 20220919
  2. ASPIRIN [Suspect]
     Active Substance: ASPIRIN
     Indication: Foetal exposure during pregnancy
     Dosage: 100 MG/DAY
     Route: 064
     Dates: start: 20220718, end: 20220919
  3. PEGASYS [Suspect]
     Active Substance: PEGINTERFERON ALFA-2A
     Indication: Foetal exposure during pregnancy
     Dosage: 135 MICROGRAMS/WEEK
     Route: 064
     Dates: start: 20220718, end: 20220919

REACTIONS (3)
  - Neural tube defect [Fatal]
  - Congenital osteodystrophy [Fatal]
  - Exomphalos [Fatal]
